FAERS Safety Report 10019992 (Version 5)
Quarter: 2014Q2

REPORT INFORMATION
  Report Type: Spontaneous
  Country: US (occurrence: US)
  Receive Date: 20140318
  Receipt Date: 20140604
  Transmission Date: 20141212
  Serious: No
  Sender: FDA-Public Use
  Company Number: US-GILEAD-2014-0096970

PATIENT
  Sex: Female

DRUGS (4)
  1. LETAIRIS [Suspect]
     Indication: PULMONARY HYPERTENSION
     Dosage: 5 MG, QD
     Route: 065
     Dates: start: 20120912
  2. LETAIRIS [Suspect]
     Indication: PULMONARY HYPERTENSION
  3. RIOCIGUAT [Suspect]
     Indication: PRODUCT USED FOR UNKNOWN INDICATION
     Route: 065
  4. ADCIRCA [Concomitant]

REACTIONS (12)
  - Faeces discoloured [Not Recovered/Not Resolved]
  - Increased appetite [Unknown]
  - International normalised ratio increased [Unknown]
  - Sleep disorder [Unknown]
  - Hyperhidrosis [Unknown]
  - Chills [Unknown]
  - Muscle spasms [Not Recovered/Not Resolved]
  - Visual impairment [Unknown]
  - Dizziness [Unknown]
  - Nasal congestion [Unknown]
  - Hot flush [Unknown]
  - Fatigue [Not Recovered/Not Resolved]
